FAERS Safety Report 23326196 (Version 1)
Quarter: 2023Q4

REPORT INFORMATION
  Report Type: Spontaneous
  Country: US (occurrence: US)
  Receive Date: 20231221
  Receipt Date: 20231221
  Transmission Date: 20240110
  Serious: No
  Sender: FDA-Public Use
  Company Number: US-BRISTOL-MYERS SQUIBB COMPANY-2023-184677

PATIENT
  Age: 90 Year
  Sex: Female
  Weight: 52.62 kg

DRUGS (1)
  1. REVLIMID [Suspect]
     Active Substance: LENALIDOMIDE
     Indication: Myeloproliferative neoplasm
     Dosage: FREQUENCY: DAILY FOR 21DAYS.
     Route: 048

REACTIONS (4)
  - Pruritus [Unknown]
  - Burning sensation [Unknown]
  - Off label use [Unknown]
  - Arthralgia [Unknown]
